FAERS Safety Report 8827407 (Version 1)
Quarter: 2012Q4

REPORT INFORMATION
  Report Type: 
  Country: US (occurrence: US)
  Receive Date: 20121005
  Receipt Date: 20121005
  Transmission Date: 20130627
  Serious: No
  Sender: FDA-Public Use
  Company Number: US-BRISTOL-MYERS SQUIBB COMPANY-16499808

PATIENT
  Age: 60 Year
  Sex: Female
  Weight: 61 kg

DRUGS (4)
  1. AVAPRO [Suspect]
     Indication: BLOOD PRESSURE
     Dates: start: 201106
  2. VITAMIN D [Concomitant]
  3. CENTRUM [Concomitant]
     Dosage: Centrum Vitamins
  4. AMBIEN [Concomitant]
     Indication: SLEEP DISORDER
     Dosage: 1 Df: 1/2 Units NOS

REACTIONS (1)
  - Blood test abnormal [Not Recovered/Not Resolved]
